FAERS Safety Report 17398625 (Version 2)
Quarter: 2020Q2

REPORT INFORMATION
  Report Type: Spontaneous
  Country: FR (occurrence: FR)
  Receive Date: 20200210
  Receipt Date: 20200529
  Transmission Date: 20200713
  Serious: Yes (Other)
  Sender: FDA-Public Use
  Company Number: FR-PURDUE PHARMA-GBR-2020-0074884

PATIENT
  Age: 69 Year
  Sex: Male
  Weight: 89 kg

DRUGS (7)
  1. COLCHICINE. [Suspect]
     Active Substance: COLCHICINE
     Indication: ARTHRITIS
     Dosage: 1 MG, DAILY
     Route: 048
     Dates: start: 20191223
  2. OXYCODONE HYDROCHLORIDE. [Suspect]
     Active Substance: OXYCODONE HYDROCHLORIDE
     Indication: PAIN
     Dosage: 5 MG, UNK
     Route: 048
     Dates: start: 20191217
  3. DALBAVANCIN. [Suspect]
     Active Substance: DALBAVANCIN
     Indication: INFECTION
     Dosage: 1500 MG, QOW
     Route: 042
     Dates: start: 20191224, end: 20200107
  4. LOVENOX [Suspect]
     Active Substance: ENOXAPARIN SODIUM
     Indication: THROMBOSIS PROPHYLAXIS
     Dosage: 1 DF, DAILY
     Route: 058
     Dates: start: 20191218
  5. LEVOFLOXACINE [Suspect]
     Active Substance: LEVOFLOXACIN
     Indication: INFECTION
     Dosage: 500 MG, DAILY
     Route: 048
     Dates: start: 20191203
  6. XATRAL [Concomitant]
     Active Substance: ALFUZOSIN
     Dosage: INCONNUE
     Route: 065
     Dates: start: 20191124
  7. CEFTRIAXONE. [Concomitant]
     Active Substance: CEFTRIAXONE
     Indication: INFECTION
     Dosage: 2 G, DAILY
     Route: 042
     Dates: start: 20191206, end: 20191219

REACTIONS (1)
  - Renal failure [Not Recovered/Not Resolved]

NARRATIVE: CASE EVENT DATE: 20200107
